FAERS Safety Report 21088172 (Version 3)
Quarter: 2022Q3

REPORT INFORMATION
  Report Type: Spontaneous
  Country: DK (occurrence: DK)
  Receive Date: 20220715
  Receipt Date: 20220804
  Transmission Date: 20221027
  Serious: Yes (Other)
  Sender: FDA-Public Use
  Company Number: DK-EMA-DD-20220705-186141-083939

PATIENT
  Age: 57 Year
  Sex: Female

DRUGS (2)
  1. PRAMIPEXOLE [Suspect]
     Active Substance: PRAMIPEXOLE
     Indication: Restless legs syndrome
     Dosage: UNK
     Route: 065
     Dates: start: 2007
  2. PRAMIPEXOLE [Suspect]
     Active Substance: PRAMIPEXOLE
     Dosage: 0.52 MILLIGRAM, ONCE A DAY (0.52 MG ? 1) 0.52 MILLIGRAM, ONCE A DAY (0.52 MG ? 1)AND GRADUALLY INCRE
     Route: 065
     Dates: start: 2012

REACTIONS (4)
  - Suicidal ideation [Unknown]
  - Depression [Unknown]
  - Gambling disorder [Recovered/Resolved]
  - Restlessness [Recovered/Resolved]
